FAERS Safety Report 11306018 (Version 1)
Quarter: 2015Q3

REPORT INFORMATION
  Report Type: Spontaneous
  Country: KR (occurrence: KR)
  Receive Date: 20150723
  Receipt Date: 20150723
  Transmission Date: 20151125
  Serious: Yes (Hospitalization)
  Sender: FDA-Public Use
  Company Number: KR-AMGEN-KORCT2015073842

PATIENT
  Age: 42 Year
  Sex: Female

DRUGS (33)
  1. DOXORUBICIN [Concomitant]
     Active Substance: DOXORUBICIN
     Dosage: 85 MG, UNK
     Route: 042
     Dates: start: 20150430, end: 20150430
  2. DOXORUBICIN [Concomitant]
     Active Substance: DOXORUBICIN
     Dosage: 73.53 MG, UNK
     Route: 042
     Dates: start: 20150611, end: 20150611
  3. TRIDOL [Concomitant]
     Dosage: 50 MG, UNK
     Route: 048
     Dates: start: 20150408, end: 20150415
  4. TROLAC [Concomitant]
     Dosage: 30 MG, UNK
     Route: 042
     Dates: start: 20150506, end: 20150507
  5. DOCETAXEL. [Concomitant]
     Active Substance: DOCETAXEL
     Dosage: 129 MG, UNK
     Route: 042
     Dates: start: 20150409, end: 20150409
  6. CYCLOPHOSPHAMIDE. [Concomitant]
     Active Substance: CYCLOPHOSPHAMIDE
     Dosage: 860 MG, UNK
     Route: 042
     Dates: start: 20150409, end: 20150409
  7. TAZOPERAN [Concomitant]
     Dosage: 4.5 G, UNK
     Route: 042
     Dates: start: 20150415, end: 20150419
  8. LEGALON [Concomitant]
     Active Substance: MILK THISTLE
     Dosage: 140 MG, UNK
     Route: 048
     Dates: start: 20150510, end: 20150511
  9. DOCETAXEL. [Concomitant]
     Active Substance: DOCETAXEL
     Dosage: 110.29 MG, UNK
     Route: 042
     Dates: start: 20150611, end: 20150611
  10. ZIPAN                              /00033002/ [Concomitant]
     Dosage: 50 MG, UNK
     Route: 042
     Dates: start: 20150415, end: 20150415
  11. ZIPAN                              /00033002/ [Concomitant]
     Dosage: 50 MG, UNK
     Route: 042
     Dates: start: 20150503, end: 20150507
  12. CYCLOPHOSPHAMIDE. [Concomitant]
     Active Substance: CYCLOPHOSPHAMIDE
     Dosage: 735.25 MG, UNK
     Route: 042
     Dates: start: 20150611, end: 20150611
  13. SANCUSO [Concomitant]
     Active Substance: GRANISETRON
     Dosage: 34.3 MG, UNK
     Route: 061
     Dates: start: 20150408
  14. GABAPENTIN. [Concomitant]
     Active Substance: GABAPENTIN
     Dosage: 100 MG, UNK
     Route: 048
     Dates: start: 20150409
  15. MEGACE [Concomitant]
     Active Substance: MEGESTROL ACETATE
     Dosage: 10 ML, UNK
     Route: 048
     Dates: start: 20150430, end: 20150506
  16. FREEPAN                            /01017801/ [Concomitant]
     Dosage: 20 MG, UNK
     Route: 042
     Dates: start: 20150417, end: 20150419
  17. TATHION [Concomitant]
     Dosage: 100 MG, UNK
     Route: 042
     Dates: start: 20150506, end: 20150509
  18. RABIET [Concomitant]
     Dosage: 20 MG, UNK
     Route: 048
     Dates: start: 20150613, end: 20150625
  19. DENOGAN [Concomitant]
     Dosage: 1 G, UNK
     Route: 042
     Dates: start: 20150503, end: 20150505
  20. G-LASTA [Suspect]
     Active Substance: PEGFILGRASTIM
     Dosage: 6 MG, 1X/3WEEKS
     Route: 058
     Dates: start: 20150612
  21. DOXORUBICIN [Concomitant]
     Active Substance: DOXORUBICIN
     Dosage: 86 MG, UNK
     Route: 042
     Dates: start: 20150409, end: 20150409
  22. MECOOL [Concomitant]
     Dosage: 10 MG, UNK
     Route: 042
     Dates: start: 20150503, end: 20150505
  23. PRIVITUSS [Concomitant]
     Dosage: 8 ML, UNK
     Route: 048
     Dates: start: 20150504, end: 20150521
  24. URSA [Concomitant]
     Dosage: 200 MG, UNK
     Route: 048
     Dates: start: 20150510, end: 20150511
  25. ULCERMIN                           /00434701/ [Concomitant]
     Dosage: 15 ML, UNK
     Route: 048
     Dates: start: 20150612, end: 20150612
  26. G-LASTA [Suspect]
     Active Substance: PEGFILGRASTIM
     Indication: FEBRILE NEUTROPENIA
     Dosage: 6 MG, 1X/3WEEKS
     Route: 058
     Dates: start: 20150410
  27. G-LASTA [Suspect]
     Active Substance: PEGFILGRASTIM
     Dosage: 6 MG, 1X/3WEEKS
     Route: 058
     Dates: start: 20150501
  28. DENOGAN [Concomitant]
     Dosage: 1 G, UNK
     Route: 042
     Dates: start: 20150415, end: 20150416
  29. ALGIRON [Concomitant]
     Dosage: 5 MG, UNK
     Route: 042
     Dates: start: 20150415, end: 20150417
  30. ANTIBIO [Concomitant]
     Dosage: 300 MG, UNK
     Route: 048
     Dates: start: 20150416, end: 20150504
  31. MAGMIL [Concomitant]
     Active Substance: MAGNESIUM HYDROXIDE
     Dosage: 500 MG, UNK
     Route: 048
     Dates: start: 20150420, end: 20150504
  32. NESP [Concomitant]
     Active Substance: DARBEPOETIN ALFA
     Dosage: UNK
     Route: 058
     Dates: start: 20150429
  33. ULTRACET [Concomitant]
     Active Substance: ACETAMINOPHEN\TRAMADOL HYDROCHLORIDE
     Dosage: 1T
     Route: 048
     Dates: start: 20150614

REACTIONS (1)
  - Vasculitis [Recovered/Resolved]

NARRATIVE: CASE EVENT DATE: 20150629
